FAERS Safety Report 20604697 (Version 2)
Quarter: 2025Q4

REPORT INFORMATION
  Report Type: Spontaneous
  Country: EU (occurrence: EU)
  Receive Date: 20220316
  Receipt Date: 20251003
  Transmission Date: 20260118
  Serious: Yes (Death)
  Sender: ROCHE
  Company Number: EU-ROCHE-3021326

PATIENT
  Age: 77 Year
  Sex: Male

DRUGS (3)
  1. RITUXIMAB [Suspect]
     Active Substance: RITUXIMAB
     Indication: Immunosuppressant drug therapy
     Route: 065
  2. METHYLPREDNISOLONE [Suspect]
     Active Substance: METHYLPREDNISOLONE
     Indication: Immunosuppressant drug therapy
     Dosage: HIGH DOSE
     Route: 065
  3. TOZINAMERAN [Concomitant]
     Active Substance: TOZINAMERAN
     Dosage: SECOND DOSE ON 28/JUN/2021

REACTIONS (3)
  - Sepsis [Fatal]
  - Off label use [Fatal]
  - Respiratory disorder [Fatal]
